FAERS Safety Report 8999102 (Version 2)
Quarter: 2013Q1

REPORT INFORMATION
  Report Type: Spontaneous
  Country: IL (occurrence: IL)
  Receive Date: 20130103
  Receipt Date: 20130114
  Transmission Date: 20140127
  Serious: Yes (Hospitalization)
  Sender: FDA-Public Use
  Company Number: IL-SANOFI-AVENTIS-2013SA000050

PATIENT
  Age: 18 Year
  Sex: Male

DRUGS (2)
  1. LANTUS [Suspect]
     Indication: DIABETES MELLITUS
     Route: 058
     Dates: start: 201212
  2. NOVORAPID [Concomitant]
     Dates: start: 201212

REACTIONS (5)
  - Haemolysis [Recovered/Resolved]
  - Nausea [Unknown]
  - Headache [Unknown]
  - Ocular icterus [Unknown]
  - Yellow skin [Unknown]
